FAERS Safety Report 4681368-8 (Version None)
Quarter: 2005Q2

REPORT INFORMATION
  Report Type: 
  Country: None (occurrence: None)
  Receive Date: 20050601
  Receipt Date: 20050523
  Transmission Date: 20051028
  Serious: Yes (Life-Threatening)
  Sender: FDA-Public Use
  Company Number: 142168USA

PATIENT
  Sex: Male

DRUGS (1)
  1. NEFAZODONE HCL [Suspect]

REACTIONS (5)
  - DEPRESSION [None]
  - HOMICIDAL IDEATION [None]
  - MENTAL DISORDER [None]
  - PHARMACEUTICAL PRODUCT COMPLAINT [None]
  - SUICIDAL IDEATION [None]
